FAERS Safety Report 10050969 (Version 1)
Quarter: 2014Q2

REPORT INFORMATION
  Report Type: Spontaneous
  Country: JP (occurrence: JP)
  Receive Date: 20140401
  Receipt Date: 20140401
  Transmission Date: 20141212
  Serious: Yes (Other)
  Sender: FDA-Public Use
  Company Number: JP-GLAXOSMITHKLINE-B0980483A

PATIENT
  Age: 9 Decade
  Sex: Female

DRUGS (3)
  1. SERETIDE [Suspect]
     Indication: COUGH
     Route: 055
  2. SEREVENT [Suspect]
     Indication: PRODUCT USED FOR UNKNOWN INDICATION
     Route: 055
  3. PULMICORT [Concomitant]
     Route: 055

REACTIONS (1)
  - Gastritis fungal [Unknown]
